FAERS Safety Report 8168416-8 (Version None)
Quarter: 2012Q1

REPORT INFORMATION
  Report Type: 
  Country: None (occurrence: None)
  Receive Date: 20120227
  Receipt Date: 20120223
  Transmission Date: 20120608
  Serious: Yes (Hospitalization)
  Sender: FDA-Public Use
  Company Number: ES-PFIZER INC-2012048138

PATIENT
  Age: 72 Year
  Sex: Female

DRUGS (4)
  1. VENLAFAXINE HCL [Suspect]
     Indication: DEPRESSION
     Dosage: 375 MG DAILY
     Route: 048
     Dates: start: 20080101, end: 20111027
  2. LOSARTAN POTASSIUM AND HYDROCHLOROTHIAZIDE [Concomitant]
     Dosage: 12.5 MG/50 MG
     Route: 048
  3. ZYPREXA [Concomitant]
     Dosage: 5 MG, 1X/DAY
     Route: 048
  4. IRENOR [Concomitant]
     Dosage: 4 MG, UNK
     Route: 048

REACTIONS (1)
  - ACUTE INTERSTITIAL PNEUMONITIS [None]
